FAERS Safety Report 5663681-0 (Version None)
Quarter: 2008Q1

REPORT INFORMATION
  Report Type: 
  Country: None (occurrence: None)
  Receive Date: 20080310
  Receipt Date: 20080222
  Transmission Date: 20080703
  Serious: Yes (Disabling, Other)
  Sender: FDA-Public Use
  Company Number: 2007BM000205

PATIENT
  Age: 7 Year
  Sex: Male
  Weight: 14.6 kg

DRUGS (5)
  1. NAGLAZYME [Suspect]
     Indication: MUCOPOLYSACCHARIDOSIS VI
     Dosage: 1.5 ML;QM;INTH;15 MG;X1;IV
     Route: 037
     Dates: start: 20070101, end: 20070101
  2. NAGLAZYME [Suspect]
     Indication: MUCOPOLYSACCHARIDOSIS VI
     Dosage: 1.5 ML;QM;INTH;15 MG;X1;IV
     Route: 037
     Dates: start: 20070316, end: 20070622
  3. NAGLAZYME [Suspect]
     Indication: MUCOPOLYSACCHARIDOSIS VI
     Dosage: 1.5 ML;QM;INTH;15 MG;X1;IV
     Route: 037
     Dates: start: 20071108, end: 20071108
  4. NAGLAZYME [Suspect]
     Indication: MUCOPOLYSACCHARIDOSIS VI
     Dosage: 1.5 ML;QM;INTH;15 MG;X1;IV
     Route: 037
     Dates: start: 20071122, end: 20071122
  5. NAGLAZYME [Suspect]
     Indication: MUCOPOLYSACCHARIDOSIS VI
     Dosage: 1.5 ML;QM;INTH;15 MG;X1;IV
     Route: 037
     Dates: start: 20071220, end: 20071220

REACTIONS (8)
  - CONDITION AGGRAVATED [None]
  - DIFFUSE AXONAL INJURY [None]
  - GAIT DISTURBANCE [None]
  - HYPOTONIA [None]
  - INTERVERTEBRAL DISC DISORDER [None]
  - MUSCLE SPASTICITY [None]
  - OXYGEN SATURATION DECREASED [None]
  - PYRAMIDAL TRACT SYNDROME [None]
